FAERS Safety Report 25236074 (Version 1)
Quarter: 2025Q2

REPORT INFORMATION
  Report Type: Spontaneous
  Country: US (occurrence: US)
  Receive Date: 20250424
  Receipt Date: 20250424
  Transmission Date: 20250716
  Serious: Yes (Other)
  Sender: ORGANON
  Company Number: US-ORGANON-O2504USA002297

PATIENT
  Age: 77 Year
  Sex: Male

DRUGS (1)
  1. ASMANEX HFA [Suspect]
     Active Substance: MOMETASONE FUROATE
     Dosage: 2 PUFFS TWICE DAILY
     Dates: start: 20250408

REACTIONS (5)
  - Cardiac failure [Unknown]
  - Product dose omission issue [Unknown]
  - Device malfunction [Unknown]
  - Product packaging quantity issue [Unknown]
  - Device defective [Unknown]

NARRATIVE: CASE EVENT DATE: 20250401
